FAERS Safety Report 24772344 (Version 2)
Quarter: 2024Q4

REPORT INFORMATION
  Report Type: Spontaneous
  Country: US (occurrence: US)
  Receive Date: 20241224
  Receipt Date: 20241230
  Transmission Date: 20250115
  Serious: Yes (Other)
  Sender: PFIZER
  Company Number: US-PFIZER INC-PV202400167413

PATIENT
  Age: 67 Year
  Sex: Female

DRUGS (3)
  1. TUKYSA [Suspect]
     Active Substance: TUCATINIB
     Dosage: 150MG; 1 TABLET TWICE DAILY
  2. TUKYSA [Suspect]
     Active Substance: TUCATINIB
     Dosage: 50MG; 2 TABLETS TWICE DAILY
  3. TUKYSA [Suspect]
     Active Substance: TUCATINIB
     Dosage: 250MG PO (PER ORAL) BID (2 TAB TWICE DAILY)
     Route: 048

REACTIONS (3)
  - Illness [Unknown]
  - Off label use [Unknown]
  - Product use issue [Unknown]
